FAERS Safety Report 10233678 (Version 2)
Quarter: 2014Q3

REPORT INFORMATION
  Report Type: Spontaneous
  Country: US (occurrence: US)
  Receive Date: 20140612
  Receipt Date: 20140723
  Transmission Date: 20150326
  Serious: Yes (Hospitalization, Other)
  Sender: FDA-Public Use
  Company Number: US-BAYER-2014-087950

PATIENT
  Age: 22 Year
  Sex: Female
  Weight: 46.26 kg

DRUGS (1)
  1. MIRENA [Suspect]
     Active Substance: LEVONORGESTREL
     Indication: CONTRACEPTION
     Dosage: 20 MCG/24HR, CONT
     Route: 015
     Dates: start: 20110728, end: 20120921

REACTIONS (10)
  - Menorrhagia [None]
  - Psychological trauma [None]
  - Uterine perforation [None]
  - Injury [None]
  - Emotional distress [None]
  - Uterine haemorrhage [None]
  - Dysmenorrhoea [None]
  - Depression [None]
  - Pain [None]
  - Device dislocation [None]

NARRATIVE: CASE EVENT DATE: 201107
